FAERS Safety Report 6154358-6 (Version None)
Quarter: 2009Q2

REPORT INFORMATION
  Report Type: 
  Country: None (occurrence: None)
  Receive Date: 20090414
  Receipt Date: 20090406
  Transmission Date: 20091009
  Serious: Yes (Other)
  Sender: FDA-Public Use
  Company Number: PHHY2009PT13291

PATIENT
  Age: 63 Year
  Sex: Female

DRUGS (2)
  1. VOLTAREN [Suspect]
     Indication: MYALGIA
     Dosage: UNK
     Route: 030
     Dates: start: 20090118, end: 20090118
  2. THIOCOLCHICOSIDE [Concomitant]
     Indication: MYALGIA
     Dosage: 1 DF
     Route: 030
     Dates: start: 20090118, end: 20090118

REACTIONS (4)
  - BLOOD PRESSURE INCREASED [None]
  - ERYTHEMA [None]
  - HEADACHE [None]
  - SWELLING FACE [None]
